FAERS Safety Report 9384440 (Version 2)
Quarter: 2013Q3

REPORT INFORMATION
  Report Type: Spontaneous
  Country: BR (occurrence: None)
  Receive Date: 20130628
  Receipt Date: 20130816
  Transmission Date: 20140515
  Serious: Yes (Hospitalization)
  Sender: FDA-Public Use
  Company Number: DSU-2013-03777

PATIENT
  Age: 76 Year
  Sex: Female

DRUGS (3)
  1. OLMETEC ANLO [Suspect]
     Indication: HYPERTENSION
     Dosage: 5/40 MG QD, PER ORAL
     Route: 048
     Dates: start: 20121109, end: 20130415
  2. ASA(ACETYLSALICYLIC AICD) (ACETYLSALICYLIC ACID) [Concomitant]
  3. ATORVASTATIN (ATORVASTATIN) (ATORVASTATIN) [Concomitant]

REACTIONS (2)
  - Blood pressure decreased [None]
  - Arthropathy [None]
